FAERS Safety Report 24045510 (Version 1)
Quarter: 2024Q3

REPORT INFORMATION
  Report Type: Report from Study
  Country: US (occurrence: US)
  Receive Date: 20240703
  Receipt Date: 20240703
  Transmission Date: 20241016
  Serious: Yes (Death, Other)
  Sender: PFIZER
  Company Number: US-PFIZER INC-PV202400086710

PATIENT
  Age: 65 Year
  Sex: Female

DRUGS (2)
  1. BRAFTOVI [Suspect]
     Active Substance: ENCORAFENIB
     Indication: Malignant melanoma
     Dosage: (BRAFTOVI 75 MG CAPSULES TAKE 6 CAPSULES (450 MG) BY MOUTH ONCE DAILY
     Route: 048
     Dates: end: 20240628
  2. MEKTOVI [Suspect]
     Active Substance: BINIMETINIB
     Indication: Malignant melanoma
     Dosage: 15 MG TABLETS TAKE 3 TABLETS (45 MG) BY MOUTH TWICE DAILY)
     Route: 048
     Dates: end: 20240628

REACTIONS (3)
  - Death [Fatal]
  - Dyspnoea [Unknown]
  - Central nervous system lesion [Unknown]

NARRATIVE: CASE EVENT DATE: 20240601
